FAERS Safety Report 10255609 (Version 2)
Quarter: 2014Q2

REPORT INFORMATION
  Report Type: Spontaneous
  Country: US (occurrence: US)
  Receive Date: 20140624
  Receipt Date: 20140625
  Transmission Date: 20141212
  Serious: No
  Sender: FDA-Public Use
  Company Number: US-009507513-1406USA005752

PATIENT
  Sex: Female

DRUGS (1)
  1. FOLLISTIM AQ CARTRIDGE [Suspect]
     Dosage: UNK
     Dates: start: 20140607

REACTIONS (3)
  - Injection site bruising [Unknown]
  - Product quality issue [Unknown]
  - Overdose [Unknown]
